FAERS Safety Report 9163164 (Version 1)
Quarter: 2013Q1

REPORT INFORMATION
  Report Type: Spontaneous
  Country: SE (occurrence: None)
  Receive Date: 20130221
  Receipt Date: 20130221
  Transmission Date: 20140127
  Serious: Yes (Hospitalization)
  Sender: FDA-Public Use
  Company Number: 2013SE0066

PATIENT
  Sex: 0

DRUGS (1)
  1. ORFADIN  (NITISINONE) [Suspect]
     Indication: TYROSINAEMIA
     Dosage: 02/FEB/1994  -  STOPPED
     Dates: start: 19740202

REACTIONS (1)
  - Liver transplant [None]
